FAERS Safety Report 7693713-X (Version None)
Quarter: 2011Q3

REPORT INFORMATION
  Report Type: 
  Country: None (occurrence: None)
  Receive Date: 20110819
  Receipt Date: 20110811
  Transmission Date: 20111222
  Serious: Yes (Life-Threatening, Hospitalization)
  Sender: FDA-Public Use
  Company Number: US-JNJFOC-20110508130

PATIENT
  Sex: Male
  Weight: 79.5 kg

DRUGS (10)
  1. RESTASIS [Concomitant]
     Indication: DRY EYE
     Route: 065
     Dates: start: 20100831
  2. SIMVASTATIN [Interacting]
     Indication: BLOOD CHOLESTEROL
     Route: 065
     Dates: start: 20101026
  3. ASPIRIN [Concomitant]
     Indication: CARDIOVASCULAR EVENT PROPHYLAXIS
     Route: 065
     Dates: start: 20060101
  4. ABIRATERONE ACETATE [Suspect]
     Indication: PROSTATE CANCER METASTATIC
     Route: 048
     Dates: start: 20110329, end: 20110513
  5. SYSTANE [Concomitant]
     Indication: DRY EYE
     Route: 065
     Dates: start: 20100831
  6. PREDNISONE [Suspect]
     Indication: PROSTATE CANCER METASTATIC
     Route: 048
     Dates: start: 20110329
  7. METOPROLOL [Concomitant]
     Indication: BLOOD PRESSURE
     Route: 065
     Dates: start: 20110308
  8. ZALEPLON [Concomitant]
     Indication: INSOMNIA
     Route: 065
     Dates: start: 20101102
  9. ABIRATERONE ACETATE [Suspect]
     Route: 048
  10. FLUTICASONE PROPIONATE [Concomitant]
     Indication: MULTIPLE ALLERGIES
     Route: 065
     Dates: start: 20101102

REACTIONS (3)
  - DEHYDRATION [None]
  - DRUG INTERACTION [None]
  - BLOOD CREATINE PHOSPHOKINASE INCREASED [None]
